FAERS Safety Report 10536581 (Version 3)
Quarter: 2015Q2

REPORT INFORMATION
  Report Type: Spontaneous
  Country: US (occurrence: US)
  Receive Date: 20141022
  Receipt Date: 20150626
  Transmission Date: 20150821
  Serious: Yes (Other)
  Sender: FDA-Public Use
  Company Number: US-UCBSA-2014014608

PATIENT
  Age: 67 Year
  Sex: Male

DRUGS (3)
  1. VIMPAT [Suspect]
     Active Substance: LACOSAMIDE
     Indication: SEIZURE
     Dosage: 400 MG, ONE TIME LOADING DOSE
     Route: 042
     Dates: start: 201409, end: 201409
  2. VIMPAT [Suspect]
     Active Substance: LACOSAMIDE
     Dosage: 200 MG, 2X/DAY (BID)
     Route: 042
     Dates: start: 201409, end: 201409
  3. COREG [Concomitant]
     Active Substance: CARVEDILOL
     Indication: PROPHYLAXIS
     Dosage: 12.5 MG, ONCE DAILY (QD)
     Route: 048

REACTIONS (7)
  - Acute kidney injury [Unknown]
  - Acute respiratory failure [Unknown]
  - Sinus arrest [Recovered/Resolved]
  - Bradycardia [Recovered/Resolved]
  - Depressed level of consciousness [Unknown]
  - Mental status changes [Unknown]
  - Sepsis [Unknown]

NARRATIVE: CASE EVENT DATE: 2014
